FAERS Safety Report 11090853 (Version 2)
Quarter: 2015Q2

REPORT INFORMATION
  Report Type: Spontaneous
  Country: US (occurrence: US)
  Receive Date: 20150505
  Receipt Date: 20150508
  Transmission Date: 20150821
  Serious: Yes (Hospitalization, Other)
  Sender: FDA-Public Use
  Company Number: US-BAYER-2015-179315

PATIENT
  Age: 25 Year
  Sex: Female
  Weight: 75 kg

DRUGS (2)
  1. HYDROCODONE [Concomitant]
     Active Substance: HYDROCODONE
  2. ALEVE [Suspect]
     Active Substance: NAPROXEN SODIUM
     Dosage: UNK DF, UNK
     Route: 048

REACTIONS (5)
  - Gastric haemorrhage [Unknown]
  - Dizziness [Unknown]
  - Ovarian cyst [None]
  - Extra dose administered [Unknown]
  - Abdominal pain [Unknown]

NARRATIVE: CASE EVENT DATE: 20150424
